FAERS Safety Report 10527225 (Version 1)
Quarter: 2014Q4

REPORT INFORMATION
  Report Type: Spontaneous
  Country: US (occurrence: None)
  Receive Date: 20141016
  Receipt Date: 20141016
  Transmission Date: 20150528
  Serious: Yes (Other)
  Sender: FDA-Public Use
  Company Number: None

PATIENT
  Age: 68 Year
  Sex: Male
  Weight: 117.94 kg

DRUGS (1)
  1. TERBINAFINE 250MG [Suspect]
     Active Substance: TERBINAFINE
     Indication: FUNGAL INFECTION
     Dosage: 1 PIL 250 MG A DAY ONCE DAILY TAKEN BY MOUTH
     Route: 048

REACTIONS (7)
  - Vision blurred [None]
  - Paraesthesia [None]
  - Dry mouth [None]
  - Renal disorder [None]
  - Faeces discoloured [None]
  - Pain [None]
  - Liver disorder [None]
